FAERS Safety Report 4860622-0 (Version None)
Quarter: 2005Q4

REPORT INFORMATION
  Report Type: 
  Country: None (occurrence: None)
  Receive Date: 20051216
  Receipt Date: 20051201
  Transmission Date: 20060501
  Serious: Yes (Other)
  Sender: FDA-Public Use
  Company Number: 200512510BWH

PATIENT
  Age: 52 Year
  Sex: Female

DRUGS (9)
  1. TRASYLOL [Suspect]
     Indication: CORONARY ARTERY SURGERY
     Dosage: SEE IMAGE
     Route: 042
     Dates: start: 20051102
  2. TRASYLOL [Suspect]
     Indication: MITRAL VALVE REPAIR
     Dosage: SEE IMAGE
     Route: 042
     Dates: start: 20051102
  3. TRASYLOL [Suspect]
     Indication: CORONARY ARTERY SURGERY
     Dosage: SEE IMAGE
     Route: 042
     Dates: start: 20051102
  4. TRASYLOL [Suspect]
     Indication: MITRAL VALVE REPAIR
     Dosage: SEE IMAGE
     Route: 042
     Dates: start: 20051102
  5. TRASYLOL [Suspect]
     Indication: CORONARY ARTERY SURGERY
     Dosage: SEE IMAGE
     Route: 042
     Dates: start: 20051102
  6. TRASYLOL [Suspect]
     Indication: MITRAL VALVE REPAIR
     Dosage: SEE IMAGE
     Route: 042
     Dates: start: 20051102
  7. TRASYLOL [Suspect]
     Indication: CORONARY ARTERY SURGERY
     Dosage: SEE IMAGE
     Route: 042
     Dates: start: 20051102
  8. TRASYLOL [Suspect]
     Indication: MITRAL VALVE REPAIR
     Dosage: SEE IMAGE
     Route: 042
     Dates: start: 20051102
  9. AMICAR [Concomitant]

REACTIONS (3)
  - BRONCHOSPASM [None]
  - LUNG HYPERINFLATION [None]
  - PULMONARY OEDEMA [None]
